FAERS Safety Report 6448648-7 (Version None)
Quarter: 2009Q4

REPORT INFORMATION
  Report Type: 
  Country: None (occurrence: None)
  Receive Date: 20091120
  Receipt Date: 20091116
  Transmission Date: 20100525
  Serious: Yes (Hospitalization, Other)
  Sender: FDA-Public Use
  Company Number: US-ELI_LILLY_AND_COMPANY-US200911005065

PATIENT
  Sex: Female

DRUGS (9)
  1. HUMALOG [Suspect]
     Dosage: UNK, AS NEEDED
     Dates: start: 20080101
  2. HUMALOG [Suspect]
     Dosage: 11 U, UNK
  3. HUMALOG [Suspect]
     Dosage: 20 U, UNK
  4. ASPIRIN [Concomitant]
  5. CHOLESTEROL [Concomitant]
  6. DETROL [Concomitant]
  7. LANTUS [Concomitant]
  8. LANTUS [Concomitant]
     Dosage: 20 U, UNK
  9. LANTUS [Concomitant]
     Dosage: 11 U, UNK

REACTIONS (6)
  - ADRENAL MASS [None]
  - BLOOD GLUCOSE INCREASED [None]
  - CATARACT [None]
  - DIABETIC COMA [None]
  - RETINAL DETACHMENT [None]
  - WRONG DRUG ADMINISTERED [None]
